FAERS Safety Report 15368730 (Version 1)
Quarter: 2018Q3

REPORT INFORMATION
  Report Type: Spontaneous
  Country: US (occurrence: US)
  Receive Date: 20180911
  Receipt Date: 20180911
  Transmission Date: 20181010
  Serious: No
  Sender: FDA-Public Use
  Company Number: US-BRISTOL-MYERS SQUIBB COMPANY-BMS-2018-082039

PATIENT
  Age: 8 Year
  Sex: Male

DRUGS (2)
  1. KENALOG [Suspect]
     Active Substance: TRIAMCINOLONE ACETONIDE
     Indication: ALOPECIA AREATA
     Route: 065
  2. CLOBETASOL 0.05% [Suspect]
     Active Substance: CLOBETASOL
     Indication: ALOPECIA AREATA
     Route: 065

REACTIONS (2)
  - Condition aggravated [Recovered/Resolved]
  - Alopecia universalis [Recovered/Resolved]
